FAERS Safety Report 14997225 (Version 1)
Quarter: 2018Q2

REPORT INFORMATION
  Report Type: Spontaneous
  Country: CZ (occurrence: CZ)
  Receive Date: 20180611
  Receipt Date: 20180611
  Transmission Date: 20180711
  Serious: Yes (Other)
  Sender: FDA-Public Use
  Company Number: CZ-MYLANLABS-2018M1037822

PATIENT
  Age: 60 Year
  Sex: Female

DRUGS (2)
  1. KLACID 500 [Suspect]
     Active Substance: CLARITHROMYCIN
     Indication: TONSILLAR INFLAMMATION
     Dosage: 500 MG, UNK
  2. MONOPOST [Concomitant]
     Active Substance: LATANOPROST
     Indication: GLAUCOMA
     Dosage: UNK

REACTIONS (6)
  - Abdominal pain upper [Recovered/Resolved]
  - Formication [Recovered/Resolved]
  - Muscle spasms [Recovered/Resolved]
  - Dysgeusia [Recovered/Resolved]
  - Loss of consciousness [Recovered/Resolved]
  - Dry mouth [Recovered/Resolved]

NARRATIVE: CASE EVENT DATE: 20180220
